FAERS Safety Report 8995494 (Version 1)
Quarter: 2013Q1

REPORT INFORMATION
  Report Type: Spontaneous
  Country: US (occurrence: US)
  Receive Date: 20130103
  Receipt Date: 20130103
  Transmission Date: 20140127
  Serious: No
  Sender: FDA-Public Use
  Company Number: US-ABBOTT-12P-163-0903649-00

PATIENT
  Sex: Female
  Weight: 64.92 kg

DRUGS (2)
  1. SYNTHROID [Suspect]
     Indication: HYPOTHYROIDISM
  2. MULTIPLE UNKNOWN MEDICATIONS [Concomitant]
     Indication: PRODUCT USED FOR UNKNOWN INDICATION

REACTIONS (5)
  - Coeliac disease [Not Recovered/Not Resolved]
  - Overgrowth bacterial [Not Recovered/Not Resolved]
  - Impaired gastric emptying [Not Recovered/Not Resolved]
  - Diarrhoea [Not Recovered/Not Resolved]
  - Abdominal pain [Not Recovered/Not Resolved]
